FAERS Safety Report 22880512 (Version 3)
Quarter: 2025Q4

REPORT INFORMATION
  Report Type: Report from Study
  Country: CA (occurrence: CA)
  Receive Date: 20230829
  Receipt Date: 20251104
  Transmission Date: 20260119
  Serious: Yes (Hospitalization, Other)
  Sender: ROCHE
  Company Number: CA-ROCHE-3367389

PATIENT
  Age: 59 Year
  Sex: Male
  Weight: 78.0 kg

DRUGS (8)
  1. ACTEMRA ACTPEN [Suspect]
     Active Substance: TOCILIZUMAB
     Indication: Rheumatoid arthritis
     Dosage: ON HOLD
     Route: 058
     Dates: start: 20220617, end: 2023
  2. ACTEMRA ACTPEN [Suspect]
     Active Substance: TOCILIZUMAB
     Route: 058
     Dates: start: 2023
  3. DILANTIN [Concomitant]
     Active Substance: PHENYTOIN
  4. HYDROMORPHONE [Concomitant]
     Active Substance: HYDROMORPHONE
  5. IBUPROFEN [Concomitant]
     Active Substance: IBUPROFEN
  6. PREDNISONE [Concomitant]
     Active Substance: PREDNISONE
  7. FOLIC ACID [Concomitant]
     Active Substance: FOLIC ACID
  8. METHOTREXATE [Concomitant]
     Active Substance: METHOTREXATE

REACTIONS (8)
  - Gastrointestinal infection [Recovering/Resolving]
  - Prostatism [Unknown]
  - Raynaud^s phenomenon [Unknown]
  - Bronchiectasis [Unknown]
  - Chronic granulomatous disease [Unknown]
  - Diverticulitis [Unknown]
  - Abdominal abscess [Unknown]
  - Rheumatoid arthritis [Unknown]

NARRATIVE: CASE EVENT DATE: 20221026
